FAERS Safety Report 6388666-0 (Version None)
Quarter: 2009Q4

REPORT INFORMATION
  Report Type: 
  Country: None (occurrence: None)
  Receive Date: 20091005
  Receipt Date: 20090924
  Transmission Date: 20100525
  Serious: Yes (Other)
  Sender: FDA-Public Use
  Company Number: CA-JNJFOC-20090904859

PATIENT
  Sex: Male

DRUGS (5)
  1. EXTRA STRENGTH TYLENOL [Suspect]
     Route: 048
     Dates: start: 20090909, end: 20090909
  2. EXTRA STRENGTH TYLENOL [Suspect]
     Indication: DRUG USE FOR UNKNOWN INDICATION
     Route: 048
     Dates: start: 20090909, end: 20090909
  3. ASPIRIN [Concomitant]
  4. OXYCODONE [Concomitant]
     Indication: BACK PAIN
  5. APO-TIAPROFENIC [Concomitant]

REACTIONS (6)
  - DIZZINESS [None]
  - HEADACHE [None]
  - HEART RATE INCREASED [None]
  - INCORRECT DOSE ADMINISTERED [None]
  - NAUSEA [None]
  - NO REACTION ON PREVIOUS EXPOSURE TO DRUG [None]
